FAERS Safety Report 8105692-1 (Version None)
Quarter: 2012Q1

REPORT INFORMATION
  Report Type: 
  Country: None (occurrence: None)
  Receive Date: 20120201
  Receipt Date: 20120119
  Transmission Date: 20120608
  Serious: Yes (Hospitalization)
  Sender: FDA-Public Use
  Company Number: BR-ELI_LILLY_AND_COMPANY-BR201201005761

PATIENT
  Sex: Female
  Weight: 69 kg

DRUGS (7)
  1. HUMULIN R [Suspect]
     Dosage: 60 IU, OTHER
     Route: 058
  2. CARBAMAZEPINE [Concomitant]
     Indication: DIABETIC NEUROPATHY
     Dosage: 400 MG, BID
  3. HUMULIN R [Suspect]
     Indication: TYPE 1 DIABETES MELLITUS
     Dosage: 40 IU, EACH MORNING
     Route: 058
  4. HUMULIN R [Suspect]
     Dosage: 40 IU, EACH EVENING
     Route: 058
  5. HUMULIN N [Suspect]
     Dosage: 60 IU, OTHER
     Route: 058
  6. HUMULIN N [Suspect]
     Indication: TYPE 1 DIABETES MELLITUS
     Dosage: 40 IU, EACH MORNING
     Route: 058
  7. HUMULIN N [Suspect]
     Dosage: 40 IU, EACH EVENING
     Route: 058

REACTIONS (4)
  - INJECTION SITE INFECTION [None]
  - INJECTION SITE INDURATION [None]
  - INJECTION SITE PAIN [None]
  - ABDOMINAL ABSCESS [None]
